FAERS Safety Report 4645112-2 (Version None)
Quarter: 2005Q2

REPORT INFORMATION
  Report Type: 
  Country: None (occurrence: None)
  Receive Date: 20050422
  Receipt Date: 20050408
  Transmission Date: 20051028
  Serious: Yes (Hospitalization)
  Sender: FDA-Public Use
  Company Number: 2005AP02239

PATIENT
  Sex: Male

DRUGS (2)
  1. IRESSA [Suspect]
     Indication: LUNG ADENOCARCINOMA
     Dosage: 250 MG DAILY PO
     Route: 048
     Dates: start: 20041117, end: 20050329
  2. SIGMART [Concomitant]

REACTIONS (4)
  - DIVERTICULUM INTESTINAL HAEMORRHAGIC [None]
  - EPISTAXIS [None]
  - MELAENA [None]
  - PETECHIAE [None]
